FAERS Safety Report 11120659 (Version 1)
Quarter: 2015Q2

REPORT INFORMATION
  Report Type: Spontaneous
  Country: US (occurrence: US)
  Receive Date: 20150519
  Receipt Date: 20150519
  Transmission Date: 20150821
  Serious: Yes (Other)
  Sender: FDA-Public Use
  Company Number: US-BAYER-2015-197722

PATIENT
  Sex: Female

DRUGS (1)
  1. COPPERTONE WATER BABIES FOAMING SUNSCREEN SPF 75 PLUS [Suspect]
     Active Substance: AVOBENZONE\HOMOSALATE\OCTISALATE\OCTOCRYLENE\OXYBENZONE
     Dosage: UNK
     Route: 061

REACTIONS (5)
  - Generalised erythema [Recovering/Resolving]
  - Blister [Recovering/Resolving]
  - Burning sensation [Recovering/Resolving]
  - Rash generalised [Recovering/Resolving]
  - Chemical injury [Recovering/Resolving]
